FAERS Safety Report 15187972 (Version 1)
Quarter: 2018Q3

REPORT INFORMATION
  Report Type: Spontaneous
  Country: US (occurrence: US)
  Receive Date: 20180724
  Receipt Date: 20180724
  Transmission Date: 20181010
  Serious: No
  Sender: FDA-Public Use
  Company Number: US-BAUSCH-BL-2018-003100

PATIENT
  Age: 33 Year
  Sex: Male

DRUGS (2)
  1. JUBLIA [Suspect]
     Active Substance: EFINACONAZOLE
     Indication: ONYCHOMYCOSIS
     Route: 061
  2. JUBLIA [Suspect]
     Active Substance: EFINACONAZOLE
     Route: 061
     Dates: start: 201801

REACTIONS (4)
  - Paraesthesia [Unknown]
  - Pruritus [Unknown]
  - Erythema [Unknown]
  - Nail disorder [Unknown]

NARRATIVE: CASE EVENT DATE: 201801
